FAERS Safety Report 25730905 (Version 1)
Quarter: 2025Q3

REPORT INFORMATION
  Report Type: Spontaneous
  Country: US (occurrence: None)
  Receive Date: 20250826
  Receipt Date: 20250826
  Transmission Date: 20251020
  Serious: Yes (Hospitalization)
  Sender: FDA-CTU
  Company Number: None

PATIENT
  Age: 40 Year
  Sex: Female
  Weight: 74.7 kg

DRUGS (4)
  1. CYANOCOBALAMIN\SEMAGLUTIDE [Suspect]
     Active Substance: CYANOCOBALAMIN\SEMAGLUTIDE
     Indication: Obesity
     Route: 058
     Dates: start: 20250808, end: 20250813
  2. PREDNISONE [Concomitant]
     Active Substance: PREDNISONE
  3. METHOTREXATE [Concomitant]
     Active Substance: METHOTREXATE
  4. FOLIC ACID [Concomitant]
     Active Substance: FOLIC ACID

REACTIONS (8)
  - Drug dose titration not performed [None]
  - Incorrect dose administered [None]
  - Burning sensation [None]
  - Feeling hot [None]
  - Nausea [None]
  - Vomiting [None]
  - Haematemesis [None]
  - Hypokalaemia [None]

NARRATIVE: CASE EVENT DATE: 20250813
